FAERS Safety Report 17355812 (Version 1)
Quarter: 2020Q1

REPORT INFORMATION
  Report Type: Spontaneous
  Country: US (occurrence: US)
  Receive Date: 20200131
  Receipt Date: 20200131
  Transmission Date: 20200409
  Serious: No
  Sender: FDA-Public Use
  Company Number: US-SA-2020SA025871

PATIENT
  Age: 30 Year
  Sex: Female

DRUGS (4)
  1. DUPIXENT [Suspect]
     Active Substance: DUPILUMAB
     Indication: DERMATITIS
     Dosage: UNK UNK, QOW
     Route: 058
     Dates: start: 20180124
  2. OXCARBAZEPIN [Concomitant]
     Active Substance: OXCARBAZEPINE
  3. ATOMOXETINE. [Concomitant]
     Active Substance: ATOMOXETINE HYDROCHLORIDE
  4. LITHIUM CARBON [Concomitant]
     Active Substance: LITHIUM CARBONATE

REACTIONS (2)
  - Dermatitis [Not Recovered/Not Resolved]
  - Product dose omission [Unknown]
